FAERS Safety Report 9509705 (Version 2)
Quarter: 2013Q3

REPORT INFORMATION
  Report Type: Spontaneous
  Country: US (occurrence: US)
  Receive Date: 20130909
  Receipt Date: 20130910
  Transmission Date: 20140515
  Serious: Yes (Other)
  Sender: FDA-Public Use
  Company Number: US-BAYER-2013-108239

PATIENT
  Age: 87 Year
  Sex: Female
  Weight: 49.89 kg

DRUGS (2)
  1. BAYER ASPIRIN REGIMEN REGULAR 325 MG STRENGTH [Suspect]
     Dosage: 1 DF, QD
     Route: 048
     Dates: start: 2006, end: 2006
  2. SOTALOL [Concomitant]

REACTIONS (2)
  - Rectal haemorrhage [Recovered/Resolved]
  - Epigastric discomfort [Recovered/Resolved]
